FAERS Safety Report 9828023 (Version 1)
Quarter: 2013Q4

REPORT INFORMATION
  Report Type: Spontaneous
  Country: US (occurrence: None)
  Receive Date: 20131120
  Receipt Date: 20131120
  Transmission Date: 20140711
  Serious: Yes (Other)
  Sender: FDA-Public Use
  Company Number: 1000048167

PATIENT
  Age: 22 Year
  Sex: Female

DRUGS (6)
  1. VIIBRYD [Suspect]
     Indication: DEPRESSION
     Route: 048
     Dates: start: 20130723, end: 20130729
  2. ALCOHOL (ETHANOL) [Suspect]
     Dates: start: 20130823
  3. ZYRTEC [Concomitant]
  4. IBUPROFEN (IBUPROFEN) (IBUPROFEN) [Concomitant]
  5. ADDERALL)OBETROL/01345401/OBETROL/01345401) [Concomitant]
  6. SONATA (ZALEPLON) (ZALEPLON) [Concomitant]

REACTIONS (2)
  - Hypersomnia [None]
  - Mechanical urticaria [None]
